FAERS Safety Report 9084493 (Version 2)
Quarter: 2013Q1

REPORT INFORMATION
  Report Type: Spontaneous
  Country: US (occurrence: US)
  Receive Date: 20130131
  Receipt Date: 20130220
  Transmission Date: 20140127
  Serious: Yes (Other)
  Sender: FDA-Public Use
  Company Number: US-PFIZER INC-2013035448

PATIENT
  Age: 63 Year
  Sex: Female
  Weight: 65.31 kg

DRUGS (4)
  1. PENICILLIN G PROCAINE [Suspect]
     Dosage: UNK
  2. TRIMETHOPRIM [Suspect]
     Dosage: UNK
  3. PENICILLIN G BENZATHINE [Suspect]
     Dosage: UNK
  4. SULFAMETHOXAZOLE [Suspect]
     Dosage: UNK

REACTIONS (1)
  - Anaphylactic reaction [Unknown]
